FAERS Safety Report 7825173-X (Version None)
Quarter: 2011Q4

REPORT INFORMATION
  Report Type: 
  Country: None (occurrence: None)
  Receive Date: 20111019
  Receipt Date: 20111017
  Transmission Date: 20120403
  Serious: Yes (Other)
  Sender: FDA-Public Use
  Company Number: IT-PFIZER INC-2011112605

PATIENT
  Age: 3 Year
  Sex: Female

DRUGS (6)
  1. VINCRISTINE SULFATE [Suspect]
     Indication: ACUTE MYELOID LEUKAEMIA
     Dosage: 0.85 MG, CYCLIC
     Route: 042
     Dates: start: 20110418
  2. AUGMENTIN '125' [Concomitant]
     Dosage: UNK
  3. ZOFRAN [Concomitant]
     Dosage: UNK
  4. BACTRIM [Concomitant]
     Dosage: UNK
  5. MYCOSTATIN [Concomitant]
     Dosage: UNK
  6. DOXORUBICIN HCL [Suspect]
     Indication: ACUTE MYELOID LEUKAEMIA
     Dosage: 17 MG, CYCLIC
     Route: 042
     Dates: start: 20110418

REACTIONS (2)
  - IRRITABILITY [None]
  - PAIN IN EXTREMITY [None]
